FAERS Safety Report 9075334 (Version 1)
Quarter: 2013Q1

REPORT INFORMATION
  Report Type: Spontaneous
  Country: US (occurrence: US)
  Receive Date: 20130131
  Receipt Date: 20130131
  Transmission Date: 20140127
  Serious: No
  Sender: FDA-Public Use
  Company Number: US-ABBOTT-12P-163-1005344-00

PATIENT
  Age: 68 None
  Sex: Female
  Weight: 65.83 kg

DRUGS (4)
  1. HUMIRA [Suspect]
     Indication: RHEUMATOID ARTHRITIS
     Dates: start: 201210
  2. HRT [Concomitant]
     Indication: HORMONE REPLACEMENT THERAPY
  3. SIMVASTATIN [Concomitant]
     Indication: HYPERLIPIDAEMIA
  4. ACIPHEX [Concomitant]
     Indication: GASTROOESOPHAGEAL REFLUX DISEASE

REACTIONS (1)
  - Diarrhoea [Not Recovered/Not Resolved]
